FAERS Safety Report 7636878-8 (Version None)
Quarter: 2011Q3

REPORT INFORMATION
  Report Type: 
  Country: None (occurrence: None)
  Receive Date: 20110726
  Receipt Date: 20110518
  Transmission Date: 20111222
  Serious: Yes (Hospitalization)
  Sender: FDA-Public Use
  Company Number: US-BAYER-200927123GPV

PATIENT
  Age: 67 Year
  Sex: Male
  Weight: 53 kg

DRUGS (4)
  1. SORAFENIB (RAF KINASE INHIBITOR) [Suspect]
     Indication: HEPATIC NEOPLASM MALIGNANT
     Dosage: 400 MG, BID
     Route: 048
     Dates: start: 20090601, end: 20090706
  2. CLINDAMYCIN [Concomitant]
     Indication: CAMPYLOBACTER INFECTION
  3. SORAFENIB (RAF KINASE INHIBITOR) [Suspect]
     Dosage: UNK
     Dates: start: 20090723
  4. SORAFENIB (RAF KINASE INHIBITOR) [Suspect]
     Dosage: 400 MG, QD
     Route: 048
     Dates: start: 20090707, end: 20090713

REACTIONS (2)
  - HEPATIC FUNCTION ABNORMAL [None]
  - SEPSIS [None]
